FAERS Safety Report 19608226 (Version 1)
Quarter: 2021Q3

REPORT INFORMATION
  Report Type: Spontaneous
  Country: US (occurrence: US)
  Receive Date: 20210723
  Receipt Date: 20210723
  Transmission Date: 20211014
  Serious: No
  Sender: FDA-Public Use
  Company Number: None

PATIENT
  Sex: Male
  Weight: 70.2 kg

DRUGS (14)
  1. CAPECITABINE. [Suspect]
     Active Substance: CAPECITABINE
     Indication: RECTAL CANCER
     Route: 048
  2. FOLIC ACID. [Concomitant]
     Active Substance: FOLIC ACID
  3. CARBIDOPA?LEVODOPA [Concomitant]
     Active Substance: CARBIDOPA\LEVODOPA
  4. TRULANCE [Concomitant]
     Active Substance: PLECANATIDE
  5. ASPIRIN. [Concomitant]
     Active Substance: ASPIRIN
  6. ESCITALOPRAM [Concomitant]
     Active Substance: ESCITALOPRAM OXALATE
  7. VITAMIN E [Concomitant]
     Active Substance: .ALPHA.-TOCOPHEROL
  8. COENZYME Q10 [Concomitant]
     Active Substance: DIETARY SUPPLEMENT\UBIDECARENONE
  9. ATORVASTATIN [Concomitant]
     Active Substance: ATORVASTATIN
  10. EPINEPHRINE. [Concomitant]
     Active Substance: EPINEPHRINE
  11. LUMIGAN [Concomitant]
     Active Substance: BIMATOPROST
  12. CAPECITABINE. [Suspect]
     Active Substance: CAPECITABINE
     Indication: RECTAL CANCER
     Route: 048
  13. LISINOPRIL. [Concomitant]
     Active Substance: LISINOPRIL
  14. FERROUS SULFATE. [Concomitant]
     Active Substance: FERROUS SULFATE

REACTIONS (3)
  - Asthenia [None]
  - Fatigue [None]
  - Weight decreased [None]
